FAERS Safety Report 13014092 (Version 1)
Quarter: 2016Q4

REPORT INFORMATION
  Report Type: Report from Study
  Country: IN (occurrence: IN)
  Receive Date: 20161209
  Receipt Date: 20161209
  Transmission Date: 20170207
  Serious: Yes (Death, Other)
  Sender: FDA-Public Use
  Company Number: IN-BAXTER-2016BAX062149

PATIENT
  Age: 63 Year
  Sex: Female

DRUGS (1)
  1. LOW CALCIUM PERITONEAL DIALYSIS SOLUTION WITH 2.5% DEXTROSE [Suspect]
     Active Substance: CALCIUM CHLORIDE\DEXTROSE\MAGNESIUM CHLORIDE\SODIUM CHLORIDE\SODIUM LACTATE
     Indication: PERITONEAL DIALYSIS
     Route: 033

REACTIONS (2)
  - Peritonitis [Unknown]
  - Blood pressure decreased [Fatal]

NARRATIVE: CASE EVENT DATE: 20161201
